FAERS Safety Report 11350756 (Version 1)
Quarter: 2015Q3

REPORT INFORMATION
  Report Type: Spontaneous
  Country: US (occurrence: US)
  Receive Date: 20150807
  Receipt Date: 20150807
  Transmission Date: 20151125
  Serious: No
  Sender: FDA-Public Use
  Company Number: US-HORIZON-PEN-0133-2015

PATIENT
  Age: 72 Year
  Sex: Male

DRUGS (1)
  1. PENNSAID [Suspect]
     Active Substance: DICLOFENAC SODIUM
     Indication: OSTEOARTHRITIS

REACTIONS (3)
  - Balance disorder [Not Recovered/Not Resolved]
  - Ear disorder [Not Recovered/Not Resolved]
  - Off label use [Unknown]
